FAERS Safety Report 18742162 (Version 1)
Quarter: 2021Q1

REPORT INFORMATION
  Report Type: Spontaneous
  Country: GB (occurrence: GB)
  Receive Date: 20210114
  Receipt Date: 20210114
  Transmission Date: 20210419
  Serious: Yes (Other)
  Sender: FDA-Public Use
  Company Number: GB-TAKEDA-2021TUS002396

PATIENT
  Age: 35 Year
  Sex: Male
  Weight: 80 kg

DRUGS (1)
  1. VORTIOXETINE. [Suspect]
     Active Substance: VORTIOXETINE
     Indication: DEPRESSION
     Dosage: 5 MILLIGRAM
     Route: 048
     Dates: start: 20161001, end: 20161101

REACTIONS (4)
  - Erectile dysfunction [Unknown]
  - Libido decreased [Unknown]
  - Sexual dysfunction [Recovered/Resolved]
  - Anorgasmia [Unknown]

NARRATIVE: CASE EVENT DATE: 20161001
